FAERS Safety Report 6444655-9 (Version None)
Quarter: 2009Q4

REPORT INFORMATION
  Report Type: 
  Country: None (occurrence: None)
  Receive Date: 20091118
  Receipt Date: 20091113
  Transmission Date: 20100525
  Serious: Yes (Life-Threatening)
  Sender: FDA-Public Use
  Company Number: FR-KINGPHARMUSA00001-K200901427

PATIENT
  Sex: Female

DRUGS (1)
  1. ALTACE [Suspect]
     Dosage: UNK
     Route: 048

REACTIONS (2)
  - HYPERKALAEMIA [None]
  - VENTRICULAR EXTRASYSTOLES [None]
